FAERS Safety Report 6167432-5 (Version None)
Quarter: 2009Q2

REPORT INFORMATION
  Report Type: 
  Country: None (occurrence: None)
  Receive Date: 20090424
  Receipt Date: 20090417
  Transmission Date: 20091009
  Serious: No
  Sender: FDA-Public Use
  Company Number: PHEH2009US02484

PATIENT
  Sex: Female

DRUGS (1)
  1. EXJADE [Suspect]

REACTIONS (2)
  - BLOOD PRODUCT TRANSFUSION DEPENDENT [None]
  - NEUTROPHIL COUNT DECREASED [None]
